FAERS Safety Report 5622108-5 (Version None)
Quarter: 2008Q1

REPORT INFORMATION
  Report Type: 
  Country: None (occurrence: None)
  Receive Date: 20080204
  Receipt Date: 20080125
  Transmission Date: 20080703
  Serious: Yes (Hospitalization)
  Sender: FDA-Public Use
  Company Number: WAES 0801AUS00197

PATIENT
  Age: 50 Year
  Sex: Male

DRUGS (4)
  1. TAB RALTEGRAVIR POTASSIUM 400 MG [Suspect]
     Indication: HIV INFECTION
     Dosage: 400 MG/BID/PO
     Route: 048
     Dates: start: 20071128
  2. ATAZANAVIR 200 MG [Suspect]
     Indication: HIV INFECTION
     Dosage: 400 MG/DAILY/PO
     Route: 048
     Dates: start: 20071128
  3. TENOFOVIR 300 MG [Suspect]
     Indication: HIV INFECTION
     Dosage: 300 MG/DAILY/PO
     Route: 048
     Dates: start: 20060214
  4. LAMIVUDINE 300 MG [Suspect]
     Indication: HIV INFECTION
     Dosage: 300 MG/DAILY/PO
     Route: 048
     Dates: start: 20071128

REACTIONS (5)
  - BLOOD URINE PRESENT [None]
  - DEHYDRATION [None]
  - DIABETES MELLITUS [None]
  - TACHYCARDIA [None]
  - URINE KETONE BODY PRESENT [None]
